FAERS Safety Report 11780050 (Version 1)
Quarter: 2015Q4

REPORT INFORMATION
  Report Type: Spontaneous
  Country: US (occurrence: US)
  Receive Date: 20151125
  Receipt Date: 20151125
  Transmission Date: 20160304
  Serious: No
  Sender: FDA-Public Use
  Company Number: US-ASTRAZENECA-2015SF10273

PATIENT
  Sex: Female

DRUGS (2)
  1. PRILOSEC [Suspect]
     Active Substance: OMEPRAZOLE MAGNESIUM
     Route: 048
  2. IBRANCE [Suspect]
     Active Substance: PALBOCICLIB
     Dosage: 125 MG UNKNOWN
     Route: 065
     Dates: start: 20151102

REACTIONS (4)
  - Musculoskeletal pain [Unknown]
  - Dyspepsia [Unknown]
  - Calcification of muscle [Unknown]
  - Chest pain [Unknown]
